FAERS Safety Report 5600309-X (Version None)
Quarter: 2007Q4

REPORT INFORMATION
  Report Type: 
  Country: None (occurrence: None)
  Receive Date: 20071227
  Receipt Date: 20070430
  Transmission Date: 20080405
  Serious: Yes (Other)
  Sender: FDA-Public Use
  Company Number: 2007S1000121

PATIENT
  Sex: Male

DRUGS (4)
  1. ACITRETIN [Suspect]
     Indication: PITYRIASIS RUBRA PILARIS
     Dosage: ;QD;PO : ;PO
     Route: 048
     Dates: start: 19880101, end: 19900801
  2. ACITRETIN [Suspect]
     Indication: PITYRIASIS RUBRA PILARIS
     Dosage: ;QD;PO : ;PO
     Route: 048
     Dates: start: 19900101, end: 19920101
  3. TRETINOIN [Suspect]
     Indication: PITYRIASIS RUBRA PILARIS
     Dosage: ;QD;PO
     Route: 048
     Dates: start: 19770101, end: 19790101
  4. ETRETINATE (ETRETINATE) [Suspect]
     Indication: PITYRIASIS RUBRA PILARIS
     Dosage: ;QD;PO
     Route: 048
     Dates: start: 19790101, end: 19870101

REACTIONS (3)
  - ALOPECIA [None]
  - CHEILITIS [None]
  - EXOSTOSIS [None]
